FAERS Safety Report 21714971 (Version 1)
Quarter: 2022Q4

REPORT INFORMATION
  Report Type: Spontaneous
  Country: US (occurrence: US)
  Receive Date: 20221212
  Receipt Date: 20221212
  Transmission Date: 20230113
  Serious: No
  Sender: FDA-Public Use
  Company Number: US-BRISTOL-MYERS SQUIBB COMPANY-2022-151512

PATIENT
  Age: 60 Year
  Sex: Female
  Weight: 77.5 kg

DRUGS (1)
  1. REVLIMID [Suspect]
     Active Substance: LENALIDOMIDE
     Indication: Plasma cell myeloma
     Dosage: FREQ: 21D EVERY 28D
     Route: 048
     Dates: start: 20221101

REACTIONS (1)
  - Cough [Recovering/Resolving]
